FAERS Safety Report 7672962-0 (Version None)
Quarter: 2011Q3

REPORT INFORMATION
  Report Type: 
  Country: None (occurrence: None)
  Receive Date: 20110809
  Receipt Date: 20110728
  Transmission Date: 20111222
  Serious: Yes (Hospitalization)
  Sender: FDA-Public Use
  Company Number: FR-ASTRAZENECA-2011SE45943

PATIENT
  Age: 28361 Day
  Sex: Male

DRUGS (7)
  1. NEXIUM [Suspect]
     Route: 048
     Dates: end: 20110517
  2. HAVLANE [Concomitant]
     Route: 048
  3. TRACLEER [Suspect]
     Indication: PULMONARY ARTERIAL HYPERTENSION
     Route: 048
     Dates: end: 20110505
  4. CORDARONE [Suspect]
     Indication: ATRIAL FIBRILLATION
     Route: 048
     Dates: end: 20110517
  5. IMOVANE [Concomitant]
     Route: 048
     Dates: start: 20110126
  6. DOMPERIDONE [Concomitant]
  7. SPASFON [Concomitant]
     Indication: PAIN
     Dosage: 2 DF THREE TIMES A DAY AS REQUIRED
     Route: 048

REACTIONS (1)
  - JAUNDICE CHOLESTATIC [None]
